FAERS Safety Report 8111628-X (Version None)
Quarter: 2012Q1

REPORT INFORMATION
  Report Type: 
  Country: None (occurrence: None)
  Receive Date: 20120202
  Receipt Date: 20120202
  Transmission Date: 20120608
  Serious: Yes (Hospitalization)
  Sender: FDA-Public Use
  Company Number: None

PATIENT
  Sex: Female
  Weight: 79.54 kg

DRUGS (2)
  1. ETOPOSIDE [Suspect]
     Dosage: 1333 MG
  2. CISPLATIN [Suspect]
     Dosage: 220 MG

REACTIONS (18)
  - NAUSEA [None]
  - ANAEMIA [None]
  - OESOPHAGITIS [None]
  - OROPHARYNGEAL PAIN [None]
  - DIARRHOEA [None]
  - CHEST PAIN [None]
  - THROAT IRRITATION [None]
  - DYSPHAGIA [None]
  - MUSCULOSKELETAL PAIN [None]
  - VOMITING [None]
  - URINARY TRACT INFECTION [None]
  - DEHYDRATION [None]
  - NIGHT SWEATS [None]
  - SINUSITIS [None]
  - ODYNOPHAGIA [None]
  - CLOSTRIDIAL INFECTION [None]
  - ABDOMINAL PAIN [None]
  - VERTIGO [None]
